FAERS Safety Report 11044164 (Version 1)
Quarter: 2015Q2

REPORT INFORMATION
  Report Type: Spontaneous
  Country: US (occurrence: US)
  Receive Date: 20150417
  Receipt Date: 20150417
  Transmission Date: 20150821
  Serious: No
  Sender: FDA-Public Use
  Company Number: US-PFIZER INC-2015131114

PATIENT
  Age: 76 Year
  Sex: Male
  Weight: 93 kg

DRUGS (7)
  1. GABAPENTIN. [Suspect]
     Active Substance: GABAPENTIN
     Indication: NEURALGIA
     Dosage: 2400 MG, DAILY
     Dates: end: 2008
  2. ATENOLOL. [Concomitant]
     Active Substance: ATENOLOL
     Dosage: 10 MG, DAILY
     Route: 048
  3. GLUCOPHAGE [Concomitant]
     Active Substance: METFORMIN HYDROCHLORIDE
     Dosage: 500 MG, 2X/DAY
     Route: 048
  4. LEXAPRO [Concomitant]
     Active Substance: ESCITALOPRAM OXALATE
     Dosage: UNK
  5. AMITIZA [Concomitant]
     Active Substance: LUBIPROSTONE
     Indication: CONSTIPATION
     Dosage: 24 MG, 1X/DAY, AS NEEDED
  6. LIDODERM [Concomitant]
     Active Substance: LIDOCAINE
     Dosage: 4.5 MG, UNK
  7. EXELON [Concomitant]
     Active Substance: RIVASTIGMINE TARTRATE
     Dosage: 4.5 MG, 1X/DAY

REACTIONS (2)
  - Weight increased [Unknown]
  - Drug ineffective [Unknown]
